FAERS Safety Report 6840125-4 (Version None)
Quarter: 2010Q2

REPORT INFORMATION
  Report Type: 
  Country: None (occurrence: None)
  Receive Date: 20100629
  Receipt Date: 20100303
  Transmission Date: 20101027
  Serious: No
  Sender: FDA-Public Use
  Company Number: US-WYE-H13969410

PATIENT
  Age: 55 Year
  Sex: Female
  Weight: 77.18 kg

DRUGS (6)
  1. PRISTIQ [Suspect]
     Indication: DEPRESSION
     Dosage: 50 MG 1X PER 1 DAY, ORAL
     Route: 048
     Dates: start: 20091001
  2. KLONOPIN [Concomitant]
  3. NEURONTIN [Concomitant]
  4. PROPOXYPHENE HCL [Concomitant]
  5. TRAZODONE HCL [Concomitant]
  6. NAPROXEN [Concomitant]

REACTIONS (3)
  - BREAST PAIN [None]
  - GASTROOESOPHAGEAL REFLUX DISEASE [None]
  - WEIGHT INCREASED [None]
